FAERS Safety Report 9681990 (Version 3)
Quarter: 2014Q1

REPORT INFORMATION
  Report Type: Spontaneous
  Country: US (occurrence: US)
  Receive Date: 20131111
  Receipt Date: 20140120
  Transmission Date: 20141002
  Serious: Yes (Other)
  Sender: FDA-Public Use
  Company Number: US-ABBVIE-12P-163-0934263-00

PATIENT
  Age: 63 Year
  Sex: Female
  Weight: 108.96 kg

DRUGS (25)
  1. HUMIRA [Suspect]
     Indication: PSORIASIS
     Dates: start: 2006
  2. HUMIRA [Suspect]
     Indication: PSORIATIC ARTHROPATHY
  3. HUMIRA [Suspect]
     Indication: RHEUMATOID ARTHRITIS
     Dates: start: 201310, end: 20131211
  4. ATENOLOL [Concomitant]
     Indication: HYPERTENSION
  5. METFORMIN [Concomitant]
     Indication: PRODUCT USED FOR UNKNOWN INDICATION
  6. VITAMIN D [Concomitant]
     Indication: VITAMIN D DEFICIENCY
  7. ULTRAM [Concomitant]
     Indication: PRODUCT USED FOR UNKNOWN INDICATION
     Dosage: UP TO 8 TABLETS DAILY
  8. IBUPROFEN [Concomitant]
     Indication: PRODUCT USED FOR UNKNOWN INDICATION
  9. XANAX [Concomitant]
     Indication: PRODUCT USED FOR UNKNOWN INDICATION
  10. LASIX [Concomitant]
     Indication: HYPERTENSION
  11. METHOTREXATE [Concomitant]
     Indication: PRODUCT USED FOR UNKNOWN INDICATION
  12. AMLODIPINE [Concomitant]
     Indication: HYPERTENSION
  13. NORTRIPTYLINE [Concomitant]
     Indication: DEPRESSION
     Dosage: AT NIGHT
  14. METHOCARBAMOL [Concomitant]
     Indication: PRODUCT USED FOR UNKNOWN INDICATION
  15. HYDROCODONE [Concomitant]
     Indication: PRODUCT USED FOR UNKNOWN INDICATION
  16. DIAZEPAM [Concomitant]
     Indication: PRODUCT USED FOR UNKNOWN INDICATION
  17. PHENTERMINE [Concomitant]
     Indication: WEIGHT DECREASED
  18. FOLIC ACID [Concomitant]
     Indication: PRODUCT USED FOR UNKNOWN INDICATION
  19. MULTIVITAMIN [Concomitant]
     Indication: PRODUCT USED FOR UNKNOWN INDICATION
  20. BABY ASPIRIN [Concomitant]
     Indication: PRODUCT USED FOR UNKNOWN INDICATION
  21. EXCEDRIN [Concomitant]
     Indication: PRODUCT USED FOR UNKNOWN INDICATION
  22. BENADRYL [Concomitant]
     Indication: PRODUCT USED FOR UNKNOWN INDICATION
  23. PROZAC [Concomitant]
     Indication: DEPRESSION
     Dosage: AT NIGHT
  24. FUROSEMIDE [Concomitant]
     Indication: PRODUCT USED FOR UNKNOWN INDICATION
  25. FUROSEMIDE [Concomitant]
     Dates: start: 20140106

REACTIONS (34)
  - Psoriatic arthropathy [Recovering/Resolving]
  - Oral mucosal blistering [Recovering/Resolving]
  - Gait disturbance [Recovering/Resolving]
  - Arthralgia [Not Recovered/Not Resolved]
  - Hypertension [Not Recovered/Not Resolved]
  - Skin lesion [Recovered/Resolved]
  - Wound complication [Recovered/Resolved]
  - Feeling hot [Recovered/Resolved]
  - Scar [Not Recovered/Not Resolved]
  - Blister [Recovered/Resolved]
  - Skin wound [Recovered/Resolved]
  - Spinal osteoarthritis [Recovering/Resolving]
  - Osteoarthritis [Not Recovered/Not Resolved]
  - Arthralgia [Not Recovered/Not Resolved]
  - Gastritis [Unknown]
  - Rotator cuff syndrome [Unknown]
  - Urinary tract infection [Unknown]
  - Sciatica [Unknown]
  - Fall [Unknown]
  - Foot operation [Unknown]
  - Vitamin D deficiency [Unknown]
  - Necrotising fasciitis [Unknown]
  - Arthropathy [Unknown]
  - Bladder pain [Unknown]
  - Constipation [Unknown]
  - Somnolence [Unknown]
  - Back disorder [Unknown]
  - Nausea [Unknown]
  - Vomiting [Unknown]
  - Rash [Recovered/Resolved]
  - Urinary incontinence [Unknown]
  - Rash papular [Unknown]
  - Oedema peripheral [Unknown]
  - Joint swelling [Unknown]
